FAERS Safety Report 5694843-4 (Version None)
Quarter: 2008Q2

REPORT INFORMATION
  Report Type: 
  Country: None (occurrence: None)
  Receive Date: 20080404
  Receipt Date: 20080327
  Transmission Date: 20081010
  Serious: Yes (Hospitalization)
  Sender: FDA-Public Use
  Company Number: US-AVENTIS-200718317US

PATIENT
  Sex: Male
  Weight: 114.53 kg

DRUGS (5)
  1. KETEK [Suspect]
     Route: 048
     Dates: start: 20060106, end: 20060116
  2. KETEK [Suspect]
     Route: 048
     Dates: start: 20060405, end: 20060415
  3. LAMICTAL [Concomitant]
  4. DIOVAN [Concomitant]
     Dates: end: 20070321
  5. WELLBUTRIN [Concomitant]

REACTIONS (14)
  - ALANINE AMINOTRANSFERASE INCREASED [None]
  - ASPARTATE AMINOTRANSFERASE INCREASED [None]
  - ASTHENIA [None]
  - BLOOD BILIRUBIN INCREASED [None]
  - COAGULOPATHY [None]
  - DIARRHOEA [None]
  - FATIGUE [None]
  - HEPATITIS B [None]
  - JAUNDICE [None]
  - NAUSEA [None]
  - OEDEMA [None]
  - PAIN [None]
  - SOMNOLENCE [None]
  - VOMITING [None]
